FAERS Safety Report 14849890 (Version 1)
Quarter: 2018Q2

REPORT INFORMATION
  Report Type: Spontaneous
  Country: DZ (occurrence: DZ)
  Receive Date: 20180504
  Receipt Date: 20180504
  Transmission Date: 20180711
  Serious: Yes (Death, Hospitalization)
  Sender: FDA-Public Use
  Company Number: DZ-BIOMARINAP-DZ-2018-118117

PATIENT
  Age: 30 Month
  Sex: Male
  Weight: 15 kg

DRUGS (2)
  1. SALBUTAMOL [Suspect]
     Active Substance: ALBUTEROL
     Indication: PRODUCT USED FOR UNKNOWN INDICATION
     Route: 065
  2. ALDURAZYME [Suspect]
     Active Substance: LARONIDASE
     Indication: MUCOPOLYSACCHARIDOSIS I
     Route: 041

REACTIONS (4)
  - Wheezing [Unknown]
  - Bronchospasm [Fatal]
  - Respiratory distress [Unknown]
  - Adenoidal hypertrophy [Unknown]
